FAERS Safety Report 10248595 (Version 1)
Quarter: 2014Q2

REPORT INFORMATION
  Report Type: Spontaneous
  Country: BR (occurrence: BR)
  Receive Date: 20140620
  Receipt Date: 20140620
  Transmission Date: 20141212
  Serious: Yes (Other)
  Sender: FDA-Public Use
  Company Number: BR-AMGEN INC.-BRASP2014045930

PATIENT
  Age: 31 Year
  Sex: Female

DRUGS (3)
  1. ENBREL [Suspect]
     Indication: RHEUMATOID ARTHRITIS
     Dosage: 50 MG, ONCE WEEKLY
     Route: 058
     Dates: start: 2013
  2. METHOTREXATE [Concomitant]
     Dosage: 8 TABLETS OF 2.5MG (20 MG), ONCE WEEKLY
     Route: 048
  3. FOLIC ACID [Concomitant]
     Dosage: 10 MG, QWK (2 TABLETS OF 5MG (10 MG), ONCE WEEKLY)
     Route: 048

REACTIONS (3)
  - Fall [Unknown]
  - Wrist fracture [Unknown]
  - Ligament sprain [Unknown]
